FAERS Safety Report 13855908 (Version 1)
Quarter: 2017Q3

REPORT INFORMATION
  Report Type: Spontaneous
  Country: US (occurrence: US)
  Receive Date: 20170810
  Receipt Date: 20170810
  Transmission Date: 20171127
  Serious: No
  Sender: FDA-Public Use
  Company Number: US-ROCHE-698134

PATIENT
  Sex: Female
  Weight: 72.6 kg

DRUGS (1)
  1. BONIVA [Suspect]
     Active Substance: IBANDRONATE SODIUM
     Indication: OSTEOPOROSIS
     Route: 048

REACTIONS (4)
  - Drug administration error [Unknown]
  - No adverse event [Unknown]
  - Product quality issue [Unknown]
  - Product package associated injury [Unknown]

NARRATIVE: CASE EVENT DATE: 2007
